FAERS Safety Report 5309289-8 (Version None)
Quarter: 2007Q2

REPORT INFORMATION
  Report Type: 
  Country: None (occurrence: None)
  Receive Date: 20070427
  Receipt Date: 20070416
  Transmission Date: 20071010
  Serious: Yes (Life-Threatening)
  Sender: FDA-Public Use
  Company Number: JP-ROCHE-485974

PATIENT
  Age: 45 Year
  Sex: Male

DRUGS (6)
  1. TAMIFLU [Suspect]
     Route: 048
     Dates: start: 20070226, end: 20070228
  2. TAMIFLU [Suspect]
     Route: 048
     Dates: start: 20070301, end: 20070301
  3. MUCOSTA [Concomitant]
     Route: 048
     Dates: start: 20070226
  4. DASEN [Concomitant]
     Route: 048
     Dates: start: 20070226
  5. ASVERIN [Concomitant]
     Route: 048
     Dates: start: 20070226
  6. ALESION [Concomitant]
     Route: 048

REACTIONS (5)
  - ABNORMAL BEHAVIOUR [None]
  - DEPRESSED LEVEL OF CONSCIOUSNESS [None]
  - FEELING ABNORMAL [None]
  - INSOMNIA [None]
  - SPEECH DISORDER [None]
